FAERS Safety Report 9087215 (Version 1)
Quarter: 2013Q1

REPORT INFORMATION
  Report Type: Spontaneous
  Country: FR (occurrence: FR)
  Receive Date: 20130131
  Receipt Date: 20130131
  Transmission Date: 20140127
  Serious: Yes (Hospitalization, Other)
  Sender: FDA-Public Use
  Company Number: FR-PFIZER INC-2013031095

PATIENT
  Age: 34 Year
  Sex: Male

DRUGS (4)
  1. XANAX [Suspect]
     Dosage: 6 DF, DAILY
     Route: 048
  2. STILNOX [Concomitant]
  3. ATARAX [Concomitant]
  4. SUBUTEX [Concomitant]

REACTIONS (8)
  - Suicidal ideation [Unknown]
  - Drug withdrawal syndrome [Unknown]
  - Intentional drug misuse [Unknown]
  - Agitation [Not Recovered/Not Resolved]
  - Feeling abnormal [Unknown]
  - Headache [Unknown]
  - Irritability [Unknown]
  - Sleep disorder [Unknown]
